FAERS Safety Report 7276746-7 (Version None)
Quarter: 2011Q1

REPORT INFORMATION
  Report Type: 
  Country: None (occurrence: None)
  Receive Date: 20110204
  Receipt Date: 20110204
  Transmission Date: 20110831
  Serious: Yes (Other)
  Sender: FDA-Public Use
  Company Number: JP-PFIZER INC-2011012430

PATIENT
  Sex: Female

DRUGS (7)
  1. TAKEPRON [Concomitant]
     Dosage: UNK
     Route: 048
     Dates: start: 20100924
  2. ATARAX [Suspect]
     Dosage: UNK
     Dates: start: 20101129
  3. PANTOSIN [Concomitant]
     Dosage: UNK
     Dates: start: 20100827
  4. LYRICA [Suspect]
     Indication: DIABETIC NEUROPATHY
  5. FENTANYL CITRATE [Concomitant]
     Dosage: UNK
     Route: 062
     Dates: start: 20100825
  6. KLARICID [Concomitant]
     Dosage: UNK
     Route: 048
     Dates: start: 20101223
  7. LYRICA [Suspect]
     Indication: NEURALGIA
     Dosage: 75 MG, 2X/DAY
     Route: 048
     Dates: start: 20101009

REACTIONS (3)
  - CONJUNCTIVITIS [None]
  - BLEPHARITIS [None]
  - VISUAL ACUITY REDUCED [None]
